FAERS Safety Report 6046900-0 (Version None)
Quarter: 2009Q1

REPORT INFORMATION
  Report Type: 
  Country: None (occurrence: None)
  Receive Date: 20090122
  Receipt Date: 20090120
  Transmission Date: 20090719
  Serious: Yes (Disabling)
  Sender: FDA-Public Use
  Company Number: B0555392A

PATIENT
  Age: 61 Year
  Sex: Male

DRUGS (1)
  1. CARVEDILOL [Suspect]
     Indication: DRUG USE FOR UNKNOWN INDICATION
     Dosage: 6.25MG PER DAY
     Route: 065
     Dates: end: 20080701

REACTIONS (5)
  - ARTHRITIS [None]
  - DEPRESSION [None]
  - EXTREMITY NECROSIS [None]
  - FATIGUE [None]
  - THROMBOSIS [None]
